FAERS Safety Report 15276261 (Version 1)
Quarter: 2018Q3

REPORT INFORMATION
  Report Type: Spontaneous
  Country: US (occurrence: US)
  Receive Date: 20180728
  Receipt Date: 20180728
  Transmission Date: 20181010
  Serious: No
  Sender: FDA-Public Use
  Company Number: None

PATIENT
  Age: 9 Year
  Sex: Male

DRUGS (1)
  1. CEFEPIME [Suspect]
     Active Substance: CEFEPIME HYDROCHLORIDE
     Indication: CYSTIC FIBROSIS
     Route: 042
     Dates: start: 20180713, end: 20180714

REACTIONS (2)
  - Rash generalised [None]
  - Urticaria [None]

NARRATIVE: CASE EVENT DATE: 20180714
